FAERS Safety Report 4289506-6 (Version None)
Quarter: 2004Q1

REPORT INFORMATION
  Report Type: 
  Country: None (occurrence: None)
  Receive Date: 20040113
  Receipt Date: 20021118
  Transmission Date: 20041129
  Serious: Yes (Other)
  Sender: FDA-Public Use
  Company Number: 2002067667

PATIENT
  Age: 27 Year
  Sex: Female

DRUGS (10)
  1. DIFLUCAN [Suspect]
     Indication: CRYPTOCOCCOSIS
     Dosage: 200 MG (DAILY), ORAL
     Route: 048
     Dates: start: 20020827, end: 20020924
  2. HYDRALAZINE HCL TAB [Suspect]
     Indication: HYPERTENSION
     Dosage: 60 MG (QID), ORAL
     Route: 048
     Dates: start: 20020816, end: 20020921
  3. LISINOPRIL [Suspect]
     Indication: HYPERTENSION
     Dosage: 5 MG (DAILY), ORAL
     Route: 048
     Dates: start: 20020830, end: 20020921
  4. PANTOPRAZOLE (PANTOPRAZOLE) [Concomitant]
  5. CITALOPRAM HYDROBROMIDE (CITALOPRAM HYDROBROMIDE) [Concomitant]
  6. PREDNISONE [Concomitant]
  7. LABETALOL HCL [Concomitant]
  8. AMLODIPINE [Concomitant]
  9. CALCIUM ACETATE (CALCIUM ACETATE) [Concomitant]
  10. CALCIUM CARBONATE (CALCIUM CARBONATE) [Concomitant]

REACTIONS (2)
  - STEVENS-JOHNSON SYNDROME [None]
  - TOXIC EPIDERMAL NECROLYSIS [None]
